FAERS Safety Report 4424898-6 (Version None)
Quarter: 2004Q3

REPORT INFORMATION
  Report Type: 
  Country: None (occurrence: None)
  Receive Date: 20040809
  Receipt Date: 20040421
  Transmission Date: 20050211
  Serious: Yes (Hospitalization)
  Sender: FDA-Public Use
  Company Number: A04200400354

PATIENT
  Age: 92 Year
  Sex: Female

DRUGS (9)
  1. ARIXTRA [Suspect]
     Indication: HIP ARTHROPLASTY
     Dosage: 2.5 MG; SUBCUTANEOUS
     Route: 058
     Dates: start: 20040321
  2. ARIXTRA [Suspect]
     Indication: THROMBOSIS PROPHYLAXIS
     Dosage: 2.5 MG; SUBCUTANEOUS
     Route: 058
     Dates: start: 20040321
  3. AMARYL [Concomitant]
  4. CARVEDILOL [Concomitant]
  5. RAMIPRIL [Concomitant]
  6. MEMANTINE HCL [Concomitant]
  7. CIPROBAY (CIPROFLOXACIN HYDROCHLORID) [Concomitant]
  8. INSULIN [Concomitant]
  9. ASPIRIN [Concomitant]

REACTIONS (4)
  - ANAEMIA [None]
  - CYSTITIS HAEMORRHAGIC [None]
  - POST PROCEDURAL HAEMATOMA [None]
  - PROCEDURAL COMPLICATION [None]
